FAERS Safety Report 23475255 (Version 1)
Quarter: 2024Q1

REPORT INFORMATION
  Report Type: Spontaneous
  Country: CH (occurrence: CH)
  Receive Date: 20240204
  Receipt Date: 20240204
  Transmission Date: 20240410
  Serious: No
  Sender: FDA-Public Use
  Company Number: CH-EXELIXIS-CABO-22059007

PATIENT
  Sex: Male

DRUGS (8)
  1. CABOMETYX [Suspect]
     Active Substance: CABOZANTINIB S-MALATE
     Indication: Papillary renal cell carcinoma
     Dosage: 40 MG, QD
     Dates: end: 20221124
  2. CABOMETYX [Suspect]
     Active Substance: CABOZANTINIB S-MALATE
     Indication: Metastases to central nervous system
     Dosage: 20 MG, QD
     Dates: start: 20221230
  3. CABOMETYX [Suspect]
     Active Substance: CABOZANTINIB S-MALATE
     Indication: Metastases to lung
  4. CABOMETYX [Suspect]
     Active Substance: CABOZANTINIB S-MALATE
     Indication: Metastases to lymph nodes
  5. OPDIVO [Suspect]
     Active Substance: NIVOLUMAB
     Indication: Papillary renal cell carcinoma
     Dosage: 240 MG, Q2WEEKS
  6. OPDIVO [Suspect]
     Active Substance: NIVOLUMAB
     Indication: Metastases to central nervous system
  7. OPDIVO [Suspect]
     Active Substance: NIVOLUMAB
     Indication: Metastases to lung
  8. OPDIVO [Suspect]
     Active Substance: NIVOLUMAB
     Indication: Metastases to lymph nodes

REACTIONS (2)
  - Immune-mediated renal disorder [Unknown]
  - Palmar-plantar erythrodysaesthesia syndrome [Recovering/Resolving]
